FAERS Safety Report 15328258 (Version 2)
Quarter: 2018Q3

REPORT INFORMATION
  Report Type: Report from Study
  Country: US (occurrence: US)
  Receive Date: 20180829
  Receipt Date: 20180903
  Transmission Date: 20181010
  Serious: Yes (Hospitalization)
  Sender: FDA-Public Use
  Company Number: US-ROCHE-2173693

PATIENT
  Age: 60 Year
  Sex: Female

DRUGS (9)
  1. BEVACIZUMAB. [Suspect]
     Active Substance: BEVACIZUMAB
     Indication: LUNG NEOPLASM MALIGNANT
     Dosage: BEVACIZUMAB LAST DOSE RECEIVED ON 21/JUN/2018
     Route: 065
     Dates: start: 20171024
  2. OXYCODONE/PARACETAMOL [Concomitant]
     Active Substance: ACETAMINOPHEN\OXYCODONE HYDROCHLORIDE
     Route: 065
     Dates: end: 20171124
  3. OSIMERTINIB. [Suspect]
     Active Substance: OSIMERTINIB
     Indication: LUNG NEOPLASM MALIGNANT
     Dosage: LAST DOSE OF OSIMERTINIB RECEIVED ON 08/JUL/2018
     Route: 065
     Dates: start: 20171024
  4. OXYCODONE HYDROCHLORIDE. [Concomitant]
     Active Substance: OXYCODONE HYDROCHLORIDE
     Route: 065
     Dates: end: 20171109
  5. DEXAMETHASONE. [Concomitant]
     Active Substance: DEXAMETHASONE
     Route: 065
     Dates: end: 20171124
  6. OXYCODONE [Concomitant]
     Active Substance: OXYCODONE
     Route: 065
     Dates: end: 20171124
  7. BISACODYL. [Concomitant]
     Active Substance: BISACODYL
     Route: 065
  8. GABAPENTIN. [Concomitant]
     Active Substance: GABAPENTIN
  9. PANTOPRAZOLE [Concomitant]
     Active Substance: PANTOPRAZOLE
     Route: 065
     Dates: end: 20171124

REACTIONS (2)
  - Neoplasm [Recovered/Resolved]
  - Facial nerve disorder [Recovered/Resolved]

NARRATIVE: CASE EVENT DATE: 20180710
